FAERS Safety Report 4488329-2 (Version None)
Quarter: 2004Q4

REPORT INFORMATION
  Report Type: 
  Country: None (occurrence: None)
  Receive Date: 20041028
  Receipt Date: 20041021
  Transmission Date: 20050328
  Serious: Yes (Hospitalization)
  Sender: FDA-Public Use
  Company Number: PHRM2004FR03173

PATIENT
  Age: 46 Year
  Sex: Female
  Weight: 57 kg

DRUGS (3)
  1. LAMISIL [Suspect]
     Indication: NAIL TINEA
     Dosage: 250 MG, QD
     Route: 048
     Dates: start: 20040505, end: 20040624
  2. CIRKAN [Concomitant]
     Indication: VENOUS INSUFFICIENCY
     Dosage: 3 DF, QD
     Route: 048
     Dates: start: 20040624
  3. MINESSE [Concomitant]
     Indication: ORAL CONTRACEPTION
     Dosage: 1 DF, QD
     Route: 048

REACTIONS (13)
  - ANAEMIA HAEMOLYTIC AUTOIMMUNE [None]
  - ASTHENIA [None]
  - BLOOD BILIRUBIN INCREASED [None]
  - BLOOD LACTATE DEHYDROGENASE INCREASED [None]
  - COOMBS TEST POSITIVE [None]
  - HAEMOGLOBIN DECREASED [None]
  - HAPTOGLOBIN DECREASED [None]
  - MARROW HYPERPLASIA [None]
  - MEAN CELL VOLUME INCREASED [None]
  - OEDEMA PERIPHERAL [None]
  - PALLOR [None]
  - PALPITATIONS [None]
  - TINNITUS [None]
